FAERS Safety Report 5620078-7 (Version None)
Quarter: 2008Q1

REPORT INFORMATION
  Report Type: 
  Country: None (occurrence: None)
  Receive Date: 20080208
  Receipt Date: 20080205
  Transmission Date: 20080703
  Serious: Yes (Life-Threatening, Hospitalization)
  Sender: FDA-Public Use
  Company Number: ES-ASTRAZENECA-2008AC00381

PATIENT
  Age: 52 Year
  Sex: Female

DRUGS (6)
  1. SEROQUEL [Suspect]
     Route: 048
  2. CIPRALEX [Suspect]
     Route: 048
  3. LEXATIN [Suspect]
     Route: 048
     Dates: end: 20070801
  4. SERETIDE [Concomitant]
     Indication: ASTHMA
     Dosage: 50/100 UG
     Route: 055
     Dates: start: 20061101
  5. AMLODIPINE [Concomitant]
     Indication: HYPERTENSION
     Route: 048
  6. ATROVENT [Concomitant]
     Indication: ASTHMA
     Route: 055
     Dates: start: 20061101

REACTIONS (1)
  - RESPIRATORY FAILURE [None]
